FAERS Safety Report 5073644-4 (Version None)
Quarter: 2006Q3

REPORT INFORMATION
  Report Type: 
  Country: None (occurrence: None)
  Receive Date: 20060808
  Receipt Date: 20050314
  Transmission Date: 20061208
  Serious: No
  Sender: FDA-Public Use
  Company Number: US-AMGEN-KDL121994

PATIENT
  Sex: Male

DRUGS (2)
  1. PROCRIT [Suspect]
     Indication: RENAL FAILURE CHRONIC
     Route: 058
     Dates: start: 20050311
  2. ANTIHYPERTENSIVE MEDICATION NOS [Concomitant]

REACTIONS (3)
  - CONDITION AGGRAVATED [None]
  - EPISTAXIS [None]
  - HYPERTENSION [None]
